FAERS Safety Report 18610130 (Version 3)
Quarter: 2021Q2

REPORT INFORMATION
  Report Type: Report from Study
  Country: EG (occurrence: EG)
  Receive Date: 20201214
  Receipt Date: 20210430
  Transmission Date: 20210717
  Serious: Yes (Other)
  Sender: FDA-Public Use
  Company Number: NVSC2020EG229627

PATIENT
  Age: 60 Year
  Sex: Female

DRUGS (7)
  1. ELTROXIN [Concomitant]
     Active Substance: LEVOTHYROXINE
     Indication: PRODUCT USED FOR UNKNOWN INDICATION
     Dosage: 100 MG, QD (IN THE MORNING)
     Route: 065
     Dates: start: 2019
  2. FASLODEX [Concomitant]
     Active Substance: FULVESTRANT
     Indication: PRODUCT USED FOR UNKNOWN INDICATION
     Dosage: UNK (2 INJECTIONS / 28 DAYS)
     Route: 065
  3. FEMARA [Suspect]
     Active Substance: LETROZOLE
     Indication: BREAST CANCER METASTATIC
     Dosage: UNK
     Route: 048
     Dates: start: 2014, end: 2017
  4. NEVILOB [Concomitant]
     Indication: PRODUCT USED FOR UNKNOWN INDICATION
     Dosage: 1 DF, QD
     Route: 065
  5. EXAMIDA [Concomitant]
     Indication: PRODUCT USED FOR UNKNOWN INDICATION
     Dosage: 1 DF, QD
     Route: 065
  6. ZOMETA [Concomitant]
     Active Substance: ZOLEDRONIC ACID
     Indication: NEOPLASM MALIGNANT
     Dosage: UNK (ACCORDING TO HER BODY WEIGHT AND HEIGHT)
     Route: 065
  7. KISQALI [Suspect]
     Active Substance: RIBOCICLIB
     Indication: BREAST CANCER METASTATIC
     Dosage: 3 DF, QD
     Route: 065
     Dates: start: 202006

REACTIONS (22)
  - Thyroid disorder [Not Recovered/Not Resolved]
  - Metastases to spine [Unknown]
  - Anxiety [Not Recovered/Not Resolved]
  - Weight decreased [Recovered/Resolved]
  - Dizziness [Not Recovered/Not Resolved]
  - Back pain [Recovered/Resolved]
  - Weight increased [Not Recovered/Not Resolved]
  - Metastases to bone [Not Recovered/Not Resolved]
  - Bradykinesia [Not Recovered/Not Resolved]
  - Fatigue [Not Recovered/Not Resolved]
  - Nausea [Not Recovered/Not Resolved]
  - Metastases to lymph nodes [Not Recovered/Not Resolved]
  - Taste disorder [Not Recovered/Not Resolved]
  - Hypertension [Recovered/Resolved]
  - Dysstasia [Unknown]
  - Palpitations [Not Recovered/Not Resolved]
  - Diarrhoea [Not Recovered/Not Resolved]
  - Hepatic enzyme increased [Not Recovered/Not Resolved]
  - Product dose omission issue [Recovered/Resolved]
  - Movement disorder [Not Recovered/Not Resolved]
  - Vomiting [Not Recovered/Not Resolved]
  - Wrong product administered [Unknown]

NARRATIVE: CASE EVENT DATE: 2015
